FAERS Safety Report 4705471-9 (Version None)
Quarter: 2005Q2

REPORT INFORMATION
  Report Type: 
  Country: None (occurrence: None)
  Receive Date: 20050629
  Receipt Date: 20050103
  Transmission Date: 20051028
  Serious: Yes (Hospitalization)
  Sender: FDA-Public Use
  Company Number: 200510175GDDC

PATIENT
  Sex: Female

DRUGS (11)
  1. MAVIK [Suspect]
  2. TRIAMCINOLONE ACETONIDE [Suspect]
     Dosage: BID INH
  3. PIOGLITAZONE HYDROCHLORIDE [Suspect]
     Dosage: 15 MG QD PO
     Route: 048
  4. ISOSORBIDE [Suspect]
     Dosage: 40 MG QD PO
     Route: 048
  5. HYDROCHLOROTHIAZIDE [Suspect]
     Dosage: 25 MG QD
  6. ATENOLOL [Suspect]
     Dosage: 50 MG QD
  7. DIGOXIN [Suspect]
     Dosage: 0.1 MG QD PO
     Route: 048
  8. CLOPIDOGREL BISULFATE [Suspect]
     Dosage: 75 MG QD PO
     Route: 048
  9. ATORVASTATIN CALCIUM [Suspect]
     Dosage: 40 MG QD PO
     Route: 048
  10. ALBUTEROL SULFATE HFA [Suspect]
     Dosage: PRN INH
  11. ISOPHANE INSULIN [Suspect]
     Dosage: QD INJ

REACTIONS (6)
  - ASTHENIA [None]
  - BLOOD PRESSURE INCREASED [None]
  - DIZZINESS [None]
  - DRUG INEFFECTIVE [None]
  - HEADACHE [None]
  - RESPIRATORY RATE INCREASED [None]
